FAERS Safety Report 5422950-X (Version None)
Quarter: 2007Q3

REPORT INFORMATION
  Report Type: 
  Country: None (occurrence: None)
  Receive Date: 20070820
  Receipt Date: 20070807
  Transmission Date: 20080115
  Serious: Yes (Death)
  Sender: FDA-Public Use
  Company Number: 20074021

PATIENT
  Sex: Female

DRUGS (1)
  1. LIORESAL [Suspect]
     Indication: MUSCLE SPASTICITY
     Dosage: 600 MCG, DAILY, INTRATHECAL
     Route: 037
     Dates: start: 19970501, end: 20070701

REACTIONS (1)
  - RESPIRATORY DISORDER [None]
